FAERS Safety Report 5630307-1 (Version None)
Quarter: 2008Q1

REPORT INFORMATION
  Report Type: 
  Country: None (occurrence: None)
  Receive Date: 20080213
  Receipt Date: 20080204
  Transmission Date: 20080703
  Serious: Yes (Hospitalization)
  Sender: FDA-Public Use
  Company Number: 2008US000457

PATIENT
  Age: 21 Month
  Sex: Male

DRUGS (2)
  1. PROGRAF [Suspect]
     Indication: LIVER AND SMALL INTESTINE TRANSPLANT
  2. CORTICOSTEROID NOS (CORTICOSTEROID NOS) [Concomitant]

REACTIONS (5)
  - APOPTOSIS [None]
  - BIOPSY SMALL INTESTINE ABNORMAL [None]
  - DEHYDRATION [None]
  - GASTROENTERITIS NOROVIRUS [None]
  - IRRITABILITY [None]
